FAERS Safety Report 25855236 (Version 1)
Quarter: 2025Q3

REPORT INFORMATION
  Report Type: Spontaneous
  Country: US (occurrence: US)
  Receive Date: 20250927
  Receipt Date: 20250927
  Transmission Date: 20251020
  Serious: No
  Sender: SANOFI AVENTIS
  Company Number: US-SA-2025SA288851

PATIENT
  Age: 55 Year
  Sex: Female
  Weight: 139.27 kg

DRUGS (6)
  1. DUPIXENT [Suspect]
     Active Substance: DUPILUMAB
     Indication: Dermatitis allergic
     Route: 058
     Dates: start: 20250917
  2. TACROLIMUS [Concomitant]
     Active Substance: TACROLIMUS
  3. PREDNISONE [Concomitant]
     Active Substance: PREDNISONE
  4. ESTRADIOL [Concomitant]
     Active Substance: ESTRADIOL
     Dosage: UNK, QW
  5. TESTOSTERONE [Concomitant]
     Active Substance: TESTOSTERONE
  6. PROGESTERONE [Concomitant]
     Active Substance: PROGESTERONE

REACTIONS (1)
  - Injection site pain [Recovered/Resolved]

NARRATIVE: CASE EVENT DATE: 20250917
